FAERS Safety Report 15839381 (Version 1)
Quarter: 2019Q1

REPORT INFORMATION
  Report Type: Spontaneous
  Country: DE (occurrence: DE)
  Receive Date: 20190117
  Receipt Date: 20190117
  Transmission Date: 20190417
  Serious: Yes (Other)
  Sender: FDA-Public Use
  Company Number: DE-GLAXOSMITHKLINE-DE2015187252

PATIENT
  Age: 36 Year
  Sex: Female

DRUGS (3)
  1. NADROPARINE [Suspect]
     Active Substance: NADROPARIN
     Indication: SCIATICA
     Dosage: UNK DF, UNK
     Route: 065
  2. DICLOFENAC (DICLOFENAC SODIUM) [Suspect]
     Active Substance: DICLOFENAC SODIUM
     Indication: SCIATICA
     Dosage: 150 MG, QD
     Route: 048
  3. DICLOFENAC (DICLOFENAC SODIUM) [Suspect]
     Active Substance: DICLOFENAC SODIUM
     Dosage: 300 MG, PRN
     Route: 048

REACTIONS (3)
  - Live birth [Unknown]
  - Oligohydramnios [Recovered/Resolved]
  - Maternal exposure during pregnancy [Recovered/Resolved]
